FAERS Safety Report 9001240 (Version 2)
Quarter: 2013Q1

REPORT INFORMATION
  Report Type: Report from Study
  Country: US (occurrence: US)
  Receive Date: 20130107
  Receipt Date: 20130108
  Transmission Date: 20140127
  Serious: Yes (Hospitalization, Other)
  Sender: FDA-Public Use
  Company Number: US-ABBOTT-12P-163-1029005-00

PATIENT
  Age: 57 Year
  Sex: Female

DRUGS (13)
  1. HUMIRA [Suspect]
     Indication: CROHN^S DISEASE
     Route: 058
  2. HUMIRA [Suspect]
     Indication: RHEUMATOID ARTHRITIS
  3. SEROQUEL [Concomitant]
     Indication: POST-TRAUMATIC STRESS DISORDER
  4. SEROQUEL [Concomitant]
     Indication: BIPOLAR I DISORDER
  5. ZOLOFT [Concomitant]
     Indication: POST-TRAUMATIC STRESS DISORDER
  6. ZOLOFT [Concomitant]
     Indication: BIPOLAR I DISORDER
  7. SINGULAIR [Concomitant]
     Indication: HYPERSENSITIVITY
  8. PROTONIX [Concomitant]
     Indication: GASTROOESOPHAGEAL REFLUX DISEASE
  9. OXYCONTIN [Concomitant]
     Indication: PAIN
  10. FENTANYL [Concomitant]
     Indication: PAIN
     Dosage: PATCH
  11. COMBIVENT [Concomitant]
     Indication: ASTHMA
  12. COMBIVENT [Concomitant]
     Indication: CHRONIC OBSTRUCTIVE PULMONARY DISEASE
  13. ADVAIR [Concomitant]
     Indication: PRODUCT USED FOR UNKNOWN INDICATION

REACTIONS (4)
  - Pneumonia [Unknown]
  - Incisional hernia [Unknown]
  - Intestinal obstruction [Unknown]
  - Non-small cell lung cancer [Unknown]
